FAERS Safety Report 8988171 (Version 1)
Quarter: 2012Q4

REPORT INFORMATION
  Report Type: 
  Country: US (occurrence: US)
  Receive Date: 20121227
  Receipt Date: 20121227
  Transmission Date: 20130627
  Serious: Yes (Other)
  Sender: FDA-Public Use
  Company Number: US-JNJFOC-20121211027

PATIENT

DRUGS (1)
  1. PALIPERIDONE [Suspect]
     Indication: SCHIZOPHRENIA
     Dosage: 3 to 12 mg per day
     Route: 048

REACTIONS (5)
  - Blood prolactin increased [Unknown]
  - Metabolic disorder [Unknown]
  - Weight increased [Unknown]
  - Waist circumference increased [Unknown]
  - Insomnia [Unknown]
